FAERS Safety Report 17095204 (Version 1)
Quarter: 2019Q4

REPORT INFORMATION
  Report Type: Spontaneous
  Country: US (occurrence: US)
  Receive Date: 20191130
  Receipt Date: 20191130
  Transmission Date: 20200122
  Serious: Yes (Other)
  Sender: FDA-Public Use
  Company Number: US-AMGEN-USASP2019197824

PATIENT
  Sex: Female
  Weight: 56.24 kg

DRUGS (18)
  1. PROBIOTICS NOS [Concomitant]
     Active Substance: PROBIOTICS NOS
     Indication: BLOOD PRESSURE ABNORMAL
  2. VITAMIN D3 [Concomitant]
     Active Substance: CHOLECALCIFEROL
  3. XGEVA [Suspect]
     Active Substance: DENOSUMAB
     Indication: METASTASES TO BONE
     Dosage: UNK
     Route: 065
  4. IBRANCE [Suspect]
     Active Substance: PALBOCICLIB
     Indication: PRODUCT USED FOR UNKNOWN INDICATION
     Dosage: UNK
     Route: 065
  5. CLONAZEPAM. [Concomitant]
     Active Substance: CLONAZEPAM
     Indication: ANXIETY
     Dosage: UNK
  6. MELATONIN [Concomitant]
     Active Substance: MELATONIN
     Indication: BLOOD PRESSURE ABNORMAL
  7. INOSITOL [Concomitant]
     Active Substance: INOSITOL
     Indication: BLOOD PRESSURE ABNORMAL
  8. CALM [CINNAMOMUM LOUREIROI;MATRICARIA RECUTITA;MENTHA X PIPERITA OIL;Z [Concomitant]
  9. ASTRAGALUS ROOT [Concomitant]
     Active Substance: HERBALS
  10. RISPERIDONE. [Concomitant]
     Active Substance: RISPERIDONE
     Indication: ANXIETY
     Dosage: UNK
  11. IGNATIA AMARA [Concomitant]
     Active Substance: HERBALS\HOMEOPATHICS\STRYCHNOS IGNATII SEED
  12. VITAMIN C [ASCORBIC ACID;BIOFLAVONOIDS NOS] [Concomitant]
  13. GABAPENTIN. [Concomitant]
     Active Substance: GABAPENTIN
     Indication: BLOOD PRESSURE ABNORMAL
  14. AMLODIPINE BESILATE [Concomitant]
     Active Substance: AMLODIPINE BESYLATE
     Indication: BLOOD PRESSURE ABNORMAL
     Dosage: UNK
  15. LETROZOLE. [Concomitant]
     Active Substance: LETROZOLE
     Indication: HORMONE THERAPY
     Dosage: UNK
  16. COQ10 [ASCORBIC ACID;BETACAROTENE;CUPRIC OXIDE;MANGANESE SULFATE;SELEN [Concomitant]
  17. HAMAMELIS VIRGINIA [Concomitant]
  18. COLACE [Concomitant]
     Active Substance: DOCUSATE SODIUM

REACTIONS (7)
  - Pain [Recovering/Resolving]
  - Alopecia [Recovering/Resolving]
  - White blood cell count decreased [Recovering/Resolving]
  - Breast cancer [Unknown]
  - Metastases to lymph nodes [Unknown]
  - Impaired healing [Recovering/Resolving]
  - Fatigue [Recovering/Resolving]
